FAERS Safety Report 4947931-1 (Version None)
Quarter: 2006Q1

REPORT INFORMATION
  Report Type: 
  Country: None (occurrence: None)
  Receive Date: 20060317
  Receipt Date: 20060317
  Transmission Date: 20060701
  Serious: Yes (Hospitalization)
  Sender: FDA-Public Use
  Company Number: None

PATIENT
  Sex: Female
  Weight: 113 kg

DRUGS (7)
  1. TEMODAR [Suspect]
     Indication: MALIGNANT OLIGODENDROGLIOMA
     Dosage: 470MG PO QD FOR 5 DAYS
     Route: 048
     Dates: start: 20060303, end: 20060307
  2. GLEEVEC [Suspect]
     Dosage: 500MG PO BID FOR 8 DAYS
     Route: 048
     Dates: start: 20060228, end: 20060307
  3. DECADRON SRC [Concomitant]
  4. KEPPRA [Concomitant]
  5. ZOCOR [Concomitant]
  6. LEXAPRO [Concomitant]
  7. PROTONIX [Concomitant]

REACTIONS (7)
  - DIARRHOEA [None]
  - FATIGUE [None]
  - MALIGNANT NEOPLASM PROGRESSION [None]
  - MALIGNANT OLIGODENDROGLIOMA [None]
  - NAUSEA [None]
  - VIRAL INFECTION [None]
  - VOMITING [None]
